FAERS Safety Report 7141847-0 (Version None)
Quarter: 2010Q4

REPORT INFORMATION
  Report Type: 
  Country: None (occurrence: None)
  Receive Date: 20101207
  Receipt Date: 20101203
  Transmission Date: 20110411
  Serious: Yes (Death)
  Sender: FDA-Public Use
  Company Number: PHHY2010NL82472

PATIENT
  Sex: Female

DRUGS (2)
  1. ZOMETA [Suspect]
     Dosage: 4 MG (1X PER 8 WEEKS), ADMINISTERED WITH NACL 0.9% 100 ML BAG
     Dates: start: 20100823
  2. ZOMETA [Suspect]
     Dosage: 4 MG (1X PER 8 WEEKS), ADMINISTERED WITH NACL 0.9% 100 ML BAG
     Dates: start: 20101021

REACTIONS (1)
  - DEATH [None]
